FAERS Safety Report 6016898-X (Version None)
Quarter: 2008Q4

REPORT INFORMATION
  Report Type: 
  Country: None (occurrence: None)
  Receive Date: 20081222
  Receipt Date: 20081218
  Transmission Date: 20090506
  Serious: Yes (Life-Threatening, Hospitalization)
  Sender: FDA-Public Use
  Company Number: US-GENENTECH-274269

PATIENT
  Age: 30 Year
  Sex: Female
  Weight: 248 kg

DRUGS (28)
  1. XOLAIR [Suspect]
     Indication: ASTHMA
     Dosage: 2 UNK, 2/MONTH
     Route: 058
     Dates: start: 20071203
  2. ASCORBIC ACID [Concomitant]
     Indication: VITAMIN SUPPLEMENTATION
  3. MULTIVITAMINS (UNK INGREDIENTS) [Concomitant]
     Indication: VITAMIN SUPPLEMENTATION
  4. KLOR-CON [Concomitant]
     Indication: DRUG USE FOR UNKNOWN INDICATION
  5. COUMADIN [Concomitant]
     Indication: DRUG USE FOR UNKNOWN INDICATION
  6. SEROQUEL [Concomitant]
     Indication: DRUG USE FOR UNKNOWN INDICATION
  7. VYTORIN [Concomitant]
     Indication: DRUG USE FOR UNKNOWN INDICATION
  8. ZYRTEC [Concomitant]
     Indication: DRUG USE FOR UNKNOWN INDICATION
  9. METFORMIN HCL [Concomitant]
     Indication: DRUG USE FOR UNKNOWN INDICATION
  10. BACLOFEN [Concomitant]
     Indication: DRUG USE FOR UNKNOWN INDICATION
  11. PYRIDIUM [Concomitant]
     Indication: DRUG USE FOR UNKNOWN INDICATION
  12. KLONOPIN [Concomitant]
     Indication: DRUG USE FOR UNKNOWN INDICATION
  13. VERAPAMIL [Concomitant]
     Indication: DRUG USE FOR UNKNOWN INDICATION
  14. ZANTAC [Concomitant]
     Indication: DRUG USE FOR UNKNOWN INDICATION
  15. BENAZEPRIL HYDROCHLORIDE [Concomitant]
     Indication: DRUG USE FOR UNKNOWN INDICATION
  16. LASIX [Concomitant]
     Indication: DRUG USE FOR UNKNOWN INDICATION
  17. AMITRIPTYLINE [Concomitant]
     Indication: DRUG USE FOR UNKNOWN INDICATION
  18. SYNTHROID [Concomitant]
     Indication: DRUG USE FOR UNKNOWN INDICATION
  19. SINGULAIR [Concomitant]
     Indication: DRUG USE FOR UNKNOWN INDICATION
  20. CYMBALTA [Concomitant]
     Indication: DRUG USE FOR UNKNOWN INDICATION
  21. URECHOLINE [Concomitant]
     Indication: DRUG USE FOR UNKNOWN INDICATION
  22. ALLERGY SHOTS [Concomitant]
     Indication: HYPERSENSITIVITY
  23. LANTUS [Concomitant]
     Indication: DRUG USE FOR UNKNOWN INDICATION
  24. BEE VENOM [Concomitant]
     Indication: DRUG USE FOR UNKNOWN INDICATION
  25. ALBUTEROL [Concomitant]
     Indication: DRUG USE FOR UNKNOWN INDICATION
  26. ADVAIR DISKUS 250/50 [Concomitant]
     Indication: DRUG USE FOR UNKNOWN INDICATION
  27. ASMANEX TWISTHALER [Concomitant]
     Indication: DRUG USE FOR UNKNOWN INDICATION
  28. SINGULAIR [Concomitant]

REACTIONS (1)
  - PNEUMONIA BACTERIAL [None]
